FAERS Safety Report 6574044-8 (Version None)
Quarter: 2010Q1

REPORT INFORMATION
  Report Type: 
  Country: None (occurrence: None)
  Receive Date: 20100208
  Receipt Date: 20100202
  Transmission Date: 20100710
  Serious: Yes (Death)
  Sender: FDA-Public Use
  Company Number: FI-B.I. PHARMACEUTICALS,INC./RIDGEFIELD-2010-DE-00571GD

PATIENT

DRUGS (1)
  1. MELOXICAM [Suspect]

REACTIONS (1)
  - HAEMORRHAGE [None]
